FAERS Safety Report 20442017 (Version 1)
Quarter: 2022Q1

REPORT INFORMATION
  Report Type: Report from Study
  Country: US (occurrence: US)
  Receive Date: 20220208
  Receipt Date: 20220208
  Transmission Date: 20220424
  Serious: Yes (Hospitalization, Other)
  Sender: FDA-Public Use
  Company Number: US-JNJFOC-20220116383

PATIENT
  Age: 84 Year
  Sex: Female

DRUGS (11)
  1. TREMFYA [Suspect]
     Active Substance: GUSELKUMAB
     Indication: Psoriasis
     Route: 058
  2. TREMFYA [Suspect]
     Active Substance: GUSELKUMAB
     Indication: Psoriatic arthropathy
  3. PRAVASTATIN [Concomitant]
     Active Substance: PRAVASTATIN
  4. AMIODARONE [Concomitant]
     Active Substance: AMIODARONE
  5. ELIQUIS [Concomitant]
     Active Substance: APIXABAN
  6. ASPIRIN [Concomitant]
     Active Substance: ASPIRIN
  7. VITAMIN C [Concomitant]
     Active Substance: ASCORBIC ACID
  8. VITAMIN D3 [Concomitant]
     Active Substance: CHOLECALCIFEROL
  9. VITAMINS [Concomitant]
     Active Substance: VITAMINS
  10. AMLODIPINE [Concomitant]
     Active Substance: AMLODIPINE BESYLATE
  11. LOSARTAN [Concomitant]
     Active Substance: LOSARTAN

REACTIONS (8)
  - Kidney infection [Unknown]
  - Pneumonia [Recovering/Resolving]
  - Psoriatic arthropathy [Unknown]
  - Road traffic accident [Unknown]
  - Psoriasis [Recovering/Resolving]
  - Stress [Unknown]
  - Eczema eyelids [Recovering/Resolving]
  - Gait disturbance [Not Recovered/Not Resolved]

NARRATIVE: CASE EVENT DATE: 20211101
